FAERS Safety Report 7287509-0 (Version None)
Quarter: 2011Q1

REPORT INFORMATION
  Report Type: 
  Country: None (occurrence: None)
  Receive Date: 20110211
  Receipt Date: 20110203
  Transmission Date: 20110831
  Serious: Yes (Other)
  Sender: FDA-Public Use
  Company Number: BR-BRISTOL-MYERS SQUIBB COMPANY-15535511

PATIENT
  Age: 46 Year
  Sex: Female
  Weight: 50 kg

DRUGS (1)
  1. ORENCIA [Suspect]
     Indication: ANKYLOSING SPONDYLITIS
     Dosage: 2ND INF JAN11
     Route: 042
     Dates: start: 20101217

REACTIONS (3)
  - UVEITIS [None]
  - MYALGIA [None]
  - PYREXIA [None]
